FAERS Safety Report 7970487-6 (Version None)
Quarter: 2011Q4

REPORT INFORMATION
  Report Type: 
  Country: None (occurrence: None)
  Receive Date: 20111212
  Receipt Date: 20111208
  Transmission Date: 20120403
  Serious: Yes (Death, Other)
  Sender: FDA-Public Use
  Company Number: PHHY2011NL94050

PATIENT
  Sex: Female
  Weight: 50 kg

DRUGS (5)
  1. FENTANYL [Concomitant]
     Indication: PAIN
  2. NOZINAN [Concomitant]
  3. ZOMETA [Suspect]
     Dosage: 4 MG/5 ML
     Dates: start: 20110901
  4. OXYCODONE HCL [Concomitant]
     Indication: PAIN
  5. ZOMETA [Suspect]
     Indication: HYPERCALCAEMIA
     Dosage: 4 MG/5 ML

REACTIONS (4)
  - CACHEXIA [None]
  - NEOPLASM MALIGNANT [None]
  - NEOPLASM PROGRESSION [None]
  - TERMINAL STATE [None]
